FAERS Safety Report 8606875-4 (Version None)
Quarter: 2012Q3

REPORT INFORMATION
  Report Type: 
  Country: None (occurrence: None)
  Receive Date: 20120820
  Receipt Date: 20120810
  Transmission Date: 20120928
  Serious: Yes (Other)
  Sender: FDA-Public Use
  Company Number: CN-ABBOTT-12P-035-0969272-00

PATIENT
  Age: 10 Year
  Sex: Female

DRUGS (1)
  1. LEUPROLIDE ACETATE [Suspect]
     Indication: PRECOCIOUS PUBERTY
     Route: 058
     Dates: start: 20120723

REACTIONS (1)
  - RHINOSCLEROMA [None]
